FAERS Safety Report 13822141 (Version 2)
Quarter: 2017Q4

REPORT INFORMATION
  Report Type: Spontaneous
  Country: US (occurrence: US)
  Receive Date: 20170801
  Receipt Date: 20171101
  Transmission Date: 20180320
  Serious: Yes (Other)
  Sender: FDA-Public Use
  Company Number: US-PFIZER INC-2017330842

PATIENT
  Age: 42 Year
  Sex: Female

DRUGS (2)
  1. LETROZOLE. [Suspect]
     Active Substance: LETROZOLE
     Dosage: UNK
  2. IBRANCE [Suspect]
     Active Substance: PALBOCICLIB
     Dosage: 125 MG, CYCLIC, (1 CAPSULE EVERYDAY X 21 DAYS ON, 7 DAYS OFF)
     Dates: start: 20161031

REACTIONS (4)
  - Fatigue [Unknown]
  - Neoplasm progression [Unknown]
  - Alopecia [Unknown]
  - Myalgia [Unknown]
